FAERS Safety Report 14927105 (Version 10)
Quarter: 2019Q4

REPORT INFORMATION
  Report Type: Report from Study
  Country: FI (occurrence: FI)
  Receive Date: 20180523
  Receipt Date: 20191227
  Transmission Date: 20200122
  Serious: Yes (Hospitalization)
  Sender: FDA-Public Use
  Company Number: FI-EISAI MEDICAL RESEARCH-EC-2018-040035

PATIENT
  Age: 68 Year
  Sex: Female
  Weight: 69 kg

DRUGS (23)
  1. LENVATINIB [Suspect]
     Active Substance: LENVATINIB
     Route: 048
     Dates: start: 20180723, end: 20180806
  2. EVEROLIMUS. [Suspect]
     Active Substance: EVEROLIMUS
     Route: 048
     Dates: start: 20180910, end: 20181104
  3. LENVATINIB [Suspect]
     Active Substance: LENVATINIB
     Route: 048
     Dates: start: 20180910, end: 20181019
  4. LENVATINIB [Suspect]
     Active Substance: LENVATINIB
     Route: 048
     Dates: start: 20181021, end: 20181104
  5. CARDACE [Concomitant]
  6. LENVATINIB [Suspect]
     Active Substance: LENVATINIB
     Route: 048
     Dates: start: 20180811, end: 20180904
  7. EMCONCOR [Concomitant]
     Active Substance: BISOPROLOL FUMARATE
  8. LENVATINIB [Suspect]
     Active Substance: LENVATINIB
     Route: 048
     Dates: start: 20181108, end: 20181125
  9. EVEROLIMUS. [Suspect]
     Active Substance: EVEROLIMUS
     Route: 048
     Dates: start: 20180811, end: 20180904
  10. EVEROLIMUS. [Suspect]
     Active Substance: EVEROLIMUS
     Route: 048
     Dates: start: 20181129, end: 20190101
  11. OMEPRAZOL [Concomitant]
     Active Substance: OMEPRAZOLE
  12. ORMOX [Concomitant]
  13. PRIMASPAN [Concomitant]
     Active Substance: ASPIRIN
  14. OXINORM [Concomitant]
  15. LENVATINIB [Suspect]
     Active Substance: LENVATINIB
     Indication: RENAL CELL CARCINOMA
     Route: 048
     Dates: start: 20180427, end: 20180515
  16. EVEROLIMUS. [Suspect]
     Active Substance: EVEROLIMUS
     Route: 048
     Dates: start: 20181108, end: 20181125
  17. ROSUVASTATIN. [Concomitant]
     Active Substance: ROSUVASTATIN
  18. LENVATINIB [Suspect]
     Active Substance: LENVATINIB
     Route: 048
     Dates: start: 20180518, end: 20180721
  19. LENVATINIB [Suspect]
     Active Substance: LENVATINIB
     Route: 048
     Dates: start: 20181129, end: 20190101
  20. EVEROLIMUS. [Suspect]
     Active Substance: EVEROLIMUS
     Indication: RENAL CELL CARCINOMA
     Route: 048
     Dates: start: 20180427, end: 20180515
  21. EVEROLIMUS. [Suspect]
     Active Substance: EVEROLIMUS
     Route: 048
     Dates: start: 20180518, end: 20180719
  22. EVEROLIMUS. [Suspect]
     Active Substance: EVEROLIMUS
     Route: 048
     Dates: start: 20180723, end: 20180806
  23. PREDNISOLON [Concomitant]
     Active Substance: PREDNISOLONE

REACTIONS (3)
  - Coronary artery disease [Recovered/Resolved]
  - Deep vein thrombosis [Recovered/Resolved]
  - General physical health deterioration [Recovered/Resolved]

NARRATIVE: CASE EVENT DATE: 20180515
